FAERS Safety Report 8833461 (Version 3)
Quarter: 2013Q2

REPORT INFORMATION
  Report Type: Spontaneous
  Country: IT (occurrence: IT)
  Receive Date: 20121010
  Receipt Date: 20130624
  Transmission Date: 20140414
  Serious: Yes (Hospitalization, Other)
  Sender: FDA-Public Use
  Company Number: IT-PFIZER INC-2012251198

PATIENT
  Age: 50 Year
  Sex: Male

DRUGS (8)
  1. EFEXOR ER [Suspect]
     Dosage: 7 CAPSULES
     Dates: start: 20120928, end: 20120928
  2. AMLODIPINE BESILATE [Suspect]
     Dosage: 15 TABLETS
     Dates: start: 20120928, end: 20120928
  3. XERISTAR [Suspect]
     Dosage: 7 CAPSULES
     Dates: start: 20120928, end: 20120928
  4. BIFRIL [Suspect]
     Dosage: 20 TABLETS
     Dates: start: 20120928, end: 20120928
  5. SEREPRILE [Concomitant]
  6. SEROPRAM [Concomitant]
  7. ZYPREXA [Concomitant]
  8. WELLBUTRIN [Concomitant]

REACTIONS (3)
  - Toxicity to various agents [Unknown]
  - Hypotension [Unknown]
  - Vomiting [Unknown]
